FAERS Safety Report 5788829-9 (Version None)
Quarter: 2008Q2

REPORT INFORMATION
  Report Type: 
  Country: None (occurrence: None)
  Receive Date: 20080624
  Receipt Date: 20080609
  Transmission Date: 20081010
  Serious: Yes (Hospitalization)
  Sender: FDA-Public Use
  Company Number: WAES 0803USA03831

PATIENT
  Age: 67 Year
  Sex: Female

DRUGS (3)
  1. ZETIA [Suspect]
     Indication: HYPERCHOLESTEROLAEMIA
     Dosage: 10 MG/DAILY, PO
     Route: 048
     Dates: start: 20071210, end: 20080229
  2. OLMESARTAN MEDOXOMIL [Concomitant]
  3. MEDOXOMIL [Concomitant]

REACTIONS (2)
  - ANAEMIA [None]
  - PALPITATIONS [None]
